FAERS Safety Report 7147257-4 (Version None)
Quarter: 2010Q4

REPORT INFORMATION
  Report Type: 
  Country: None (occurrence: None)
  Receive Date: 20101209
  Receipt Date: 20080925
  Transmission Date: 20110411
  Serious: Yes (Death)
  Sender: FDA-Public Use
  Company Number: US-ACTELION-A-NJ2008-21926

PATIENT

DRUGS (12)
  1. ILOPROST INHALATION SOLUTION 5UG US [Suspect]
     Indication: PULMONARY ARTERIAL HYPERTENSION
     Dosage: 5 UG, 6-9XDAY
     Route: 055
     Dates: start: 20080101, end: 20080101
  2. ILOPROST INHALATION SOLUTION 5UG US [Suspect]
     Dosage: 2.5 UG, 6-9XD
     Route: 055
     Dates: start: 20080811, end: 20080101
  3. ILOPROST INHALATION SOLUTION 5UG US [Suspect]
     Dosage: 2.5 UG, 6-9XD
     Route: 055
     Dates: start: 20080101, end: 20080920
  4. SPIRIVA [Concomitant]
  5. ADVAIR [Concomitant]
  6. ALBUTEROL [Concomitant]
  7. ATROVENT [Concomitant]
  8. LASIX [Concomitant]
  9. COUMADIN [Concomitant]
  10. SPIRONOLACTONE [Concomitant]
  11. DIGOXIN [Concomitant]
  12. CENTRUM [Concomitant]

REACTIONS (8)
  - CONDITION AGGRAVATED [None]
  - DEATH [None]
  - DIZZINESS [None]
  - DYSPNOEA [None]
  - FATIGUE [None]
  - GAIT DISTURBANCE [None]
  - HEADACHE [None]
  - SCOTOMA [None]
